FAERS Safety Report 25768893 (Version 2)
Quarter: 2025Q4

REPORT INFORMATION
  Report Type: Spontaneous
  Country: EU (occurrence: EU)
  Receive Date: 20250905
  Receipt Date: 20251001
  Transmission Date: 20260117
  Serious: Yes (Other)
  Sender: INCYTE
  Company Number: EU-EVENT-004144

PATIENT
  Age: 80 Year

DRUGS (4)
  1. TAFASITAMAB [Suspect]
     Active Substance: TAFASITAMAB
     Indication: Diffuse large B-cell lymphoma
     Dosage: FOR 7 CYCLES
     Route: 065
  2. TAFASITAMAB [Suspect]
     Active Substance: TAFASITAMAB
     Dosage: 10 MILLIGRAM, QOD
     Route: 065
  3. LENALIDOMIDE [Suspect]
     Active Substance: LENALIDOMIDE
     Indication: Diffuse large B-cell lymphoma
     Dosage: UNK, FOR 7 CYCLES
     Route: 065
  4. LENALIDOMIDE [Suspect]
     Active Substance: LENALIDOMIDE
     Dosage: 10 MILLIGRAM, QOD
     Route: 065

REACTIONS (9)
  - Atrial fibrillation [Unknown]
  - Hypogammaglobulinaemia [Unknown]
  - Pneumonia [Unknown]
  - Neutropenia [Unknown]
  - Rash [Unknown]
  - Asthenia [Unknown]
  - Constipation [Unknown]
  - Anaemia [Unknown]
  - Lymphopenia [Unknown]
